FAERS Safety Report 25016010 (Version 2)
Quarter: 2025Q1

REPORT INFORMATION
  Report Type: Spontaneous
  Country: IE (occurrence: IE)
  Receive Date: 20250227
  Receipt Date: 20250305
  Transmission Date: 20250409
  Serious: Yes (Hospitalization, Disabling, Other)
  Sender: MSN LABORATORIES PRIVATE LIMITED
  Company Number: IE-MLMSERVICE-20250206-PI398212-00057-1

PATIENT

DRUGS (2)
  1. ATORVASTATIN [Suspect]
     Active Substance: ATORVASTATIN
     Indication: Cardiovascular event prophylaxis
     Dosage: 20 MG ONCE DAILY
     Route: 065
  2. APIXABAN [Concomitant]
     Active Substance: APIXABAN
     Indication: Product used for unknown indication
     Dosage: 5 MG TWO TIMES PER DAY
     Route: 065

REACTIONS (3)
  - Cardiac failure [Unknown]
  - Liver injury [Recovering/Resolving]
  - Necrotising myositis [Recovering/Resolving]
